FAERS Safety Report 5018413-6 (Version None)
Quarter: 2006Q2

REPORT INFORMATION
  Report Type: 
  Country: None (occurrence: None)
  Receive Date: 20060530
  Receipt Date: 20060516
  Transmission Date: 20061013
  Serious: Yes (Other)
  Sender: FDA-Public Use
  Company Number: 2006064576

PATIENT
  Age: 86 Year
  Sex: Female
  Weight: 73.4827 kg

DRUGS (9)
  1. AZITHROMYCIN [Suspect]
     Indication: PULMONARY CONGESTION
     Dosage: (250 MG, 1 IN 1 D), ORAL
     Route: 048
     Dates: start: 20060504, end: 20060508
  2. LIPITOR [Concomitant]
  3. LOTENSIN [Concomitant]
  4. ADALAT [Concomitant]
  5. ATENOLOL [Concomitant]
  6. HYDROCHLOROTHIAZIDE [Concomitant]
  7. TRAVATAN [Concomitant]
  8. AZOPT [Concomitant]
  9. OCUPRESS [Concomitant]

REACTIONS (2)
  - DEAFNESS [None]
  - EYE INFECTION BACTERIAL [None]
